FAERS Safety Report 10661101 (Version 1)
Quarter: 2014Q4

REPORT INFORMATION
  Report Type: Report from Study
  Country: BR (occurrence: BR)
  Receive Date: 20141218
  Receipt Date: 20141218
  Transmission Date: 20150529
  Serious: Yes (Other)
  Sender: FDA-Public Use
  Company Number: BR-ROCHE-1509293

PATIENT
  Sex: Female
  Weight: 112 kg

DRUGS (3)
  1. ANADOR [Concomitant]
     Indication: PAIN
     Dosage: DROPS
     Route: 065
  2. MABTHERA [Suspect]
     Active Substance: RITUXIMAB
     Indication: RHEUMATOID ARTHRITIS
     Route: 042
     Dates: start: 20140421
  3. MABTHERA [Suspect]
     Active Substance: RITUXIMAB
     Route: 042
     Dates: start: 20140506

REACTIONS (2)
  - Nephrolithiasis [Not Recovered/Not Resolved]
  - Asthma [Not Recovered/Not Resolved]
